FAERS Safety Report 12974475 (Version 3)
Quarter: 2016Q4

REPORT INFORMATION
  Report Type: Report from Study
  Country: US (occurrence: US)
  Receive Date: 20161125
  Receipt Date: 20161219
  Transmission Date: 20170207
  Serious: Yes (Other)
  Sender: FDA-Public Use
  Company Number: PHEH2016US030906

PATIENT
  Age: 24 Year
  Sex: Female

DRUGS (1)
  1. AFINITOR [Suspect]
     Active Substance: EVEROLIMUS
     Indication: ANGIOMYOLIPOMA
     Dosage: 10 MG, QD (ONCE DAILY)
     Route: 048
     Dates: start: 20161019

REACTIONS (3)
  - Neoplasm progression [Unknown]
  - Therapeutic response decreased [Unknown]
  - Seizure [Unknown]

NARRATIVE: CASE EVENT DATE: 20161115
